FAERS Safety Report 11806422 (Version 1)
Quarter: 2015Q4

REPORT INFORMATION
  Report Type: Spontaneous
  Country: US (occurrence: None)
  Receive Date: 20151204
  Receipt Date: 20151204
  Transmission Date: 20160305
  Serious: Yes (Hospitalization)
  Sender: FDA-Public Use
  Company Number: None

PATIENT
  Age: 35 Year
  Sex: Female
  Weight: 55.7 kg

DRUGS (28)
  1. SEROQUEL [Concomitant]
     Active Substance: QUETIAPINE FUMARATE
  2. SINUS RINSES [Concomitant]
  3. TACROLIMUS. [Concomitant]
     Active Substance: TACROLIMUS
  4. NYSTATIN. [Concomitant]
     Active Substance: NYSTATIN
  5. CREON [Concomitant]
     Active Substance: PANCRELIPASE AMYLASE\PANCRELIPASE LIPASE\PANCRELIPASE PROTEASE
  6. HCTZ [Concomitant]
     Active Substance: HYDROCHLOROTHIAZIDE
  7. FLUDROCORTISONE [Concomitant]
     Active Substance: FLUDROCORTISONE
  8. ALENDRONATE [Concomitant]
     Active Substance: ALENDRONATE SODIUM
  9. LEXAPRO [Concomitant]
     Active Substance: ESCITALOPRAM OXALATE
  10. KEPPRA [Concomitant]
     Active Substance: LEVETIRACETAM
  11. ZOFRAN [Concomitant]
     Active Substance: ONDANSETRON HYDROCHLORIDE
  12. VALGANCICLOVIR [Concomitant]
     Active Substance: VALGANCICLOVIR
  13. MAGNESIUM OXIDE. [Concomitant]
     Active Substance: MAGNESIUM OXIDE
  14. NAHCO3 [Concomitant]
     Active Substance: SODIUM BICARBONATE
  15. COLACE [Concomitant]
     Active Substance: DOCUSATE SODIUM
  16. PHENERGAN [Concomitant]
     Active Substance: PROMETHAZINE HYDROCHLORIDE
  17. VITAMIN D3 [Concomitant]
     Active Substance: CHOLECALCIFEROL
  18. NEXIUM [Concomitant]
     Active Substance: ESOMEPRAZOLE MAGNESIUM
  19. VORICONAZOLE. [Concomitant]
     Active Substance: VORICONAZOLE
  20. ATOVAQUONE. [Concomitant]
     Active Substance: ATOVAQUONE
  21. BUDESONIDE. [Concomitant]
     Active Substance: BUDESONIDE
  22. RIVAROXABAN 10MG [Suspect]
     Active Substance: RIVAROXABAN
     Indication: PULMONARY EMBOLISM
     Dosage: 1 TAB  QD ORAL
     Route: 048
  23. NIFEDIPINE CC? [Concomitant]
  24. ADEK [Concomitant]
  25. CELLUVISC EYE DROPS [Concomitant]
  26. PREDNISONE. [Concomitant]
     Active Substance: PREDNISONE
  27. CACO3 + VITAMIN D [Concomitant]
  28. FLONASE [Concomitant]
     Active Substance: FLUTICASONE PROPIONATE

REACTIONS (2)
  - Anaemia [None]
  - Vaginal haemorrhage [None]

NARRATIVE: CASE EVENT DATE: 20150923
